FAERS Safety Report 4307516-7 (Version None)
Quarter: 2004Q1

REPORT INFORMATION
  Report Type: 
  Country: None (occurrence: None)
  Receive Date: 20040226
  Receipt Date: 20040217
  Transmission Date: 20041129
  Serious: Yes (Hospitalization, Disabling, Other)
  Sender: FDA-Public Use
  Company Number: 2004200145IN

PATIENT
  Age: 35 Year
  Sex: Male
  Weight: 55 kg

DRUGS (1)
  1. DALACIN C (CLINDAMYCIN) [Suspect]
     Indication: INFECTION
     Dosage: 300 MG BID, IV
     Route: 042
     Dates: start: 20040126, end: 20040208

REACTIONS (6)
  - COMPARTMENT SYNDROME [None]
  - FASCIOTOMY [None]
  - INJECTION SITE EXTRAVASATION [None]
  - MEDICATION ERROR [None]
  - NERVOUS SYSTEM DISORDER [None]
  - SKIN GRAFT [None]
